FAERS Safety Report 16793263 (Version 4)
Quarter: 2020Q4

REPORT INFORMATION
  Report Type: Spontaneous
  Country: ES (occurrence: ES)
  Receive Date: 20190911
  Receipt Date: 20201221
  Transmission Date: 20210113
  Serious: Yes (Other)
  Sender: FDA-Public Use
  Company Number: ES-LUPIN PHARMACEUTICALS INC.-2019-05794

PATIENT
  Age: 52 Year
  Sex: Female

DRUGS (2)
  1. LEVETIRACETAM. [Suspect]
     Active Substance: LEVETIRACETAM
     Indication: GENERALISED TONIC-CLONIC SEIZURE
     Dosage: THE LEVETIRACETAM GIVEN AS 500 MG/12 HOURS (INITIALLY WITH INTRAVENOUS AND SUBSEQUENTLY WITH ORAL AD
     Route: 048
     Dates: start: 2016, end: 2016
  2. LEVETIRACETAM. [Suspect]
     Active Substance: LEVETIRACETAM
     Indication: PARTIAL SEIZURES
     Dosage: 500 MILLIGRAM, BID (THE LEVETIRACETAM GIVEN AS 500 MG/12 HOURS (INITIALLY WITH INTRAVENOUS AND SUBSE
     Route: 042
     Dates: start: 201612, end: 201612

REACTIONS (3)
  - Hallucination, visual [Recovered/Resolved]
  - Persecutory delusion [Recovered/Resolved]
  - Substance-induced psychotic disorder [Recovered/Resolved]

NARRATIVE: CASE EVENT DATE: 20161227
